FAERS Safety Report 13320320 (Version 1)
Quarter: 2017Q1

REPORT INFORMATION
  Report Type: Spontaneous
  Country: CA (occurrence: CA)
  Receive Date: 20170309
  Receipt Date: 20170309
  Transmission Date: 20170428
  Serious: Yes (Life-Threatening)
  Sender: FDA-Public Use
  Company Number: CA-TEVA-747184ACC

PATIENT
  Age: 64 Year
  Sex: Male
  Weight: 58.11 kg

DRUGS (10)
  1. MORPHINE [Concomitant]
     Active Substance: MORPHINE
  2. GABAPENTIN. [Concomitant]
     Active Substance: GABAPENTIN
  3. LANTUS [Concomitant]
     Active Substance: INSULIN GLARGINE
  4. ENOXAPARIN [Suspect]
     Active Substance: ENOXAPARIN
  5. NICOTINE. [Concomitant]
     Active Substance: NICOTINE
  6. TRAZODONE [Suspect]
     Active Substance: TRAZODONE HYDROCHLORIDE
     Indication: INSOMNIA
     Dosage: 50 MILLIGRAM DAILY;
     Route: 048
  7. CREON [Concomitant]
     Active Substance: PANCRELIPASE AMYLASE\PANCRELIPASE LIPASE\PANCRELIPASE PROTEASE
  8. SPIRIVA [Concomitant]
     Active Substance: TIOTROPIUM BROMIDE MONOHYDRATE
  9. VITAMIN D [Concomitant]
     Active Substance: CHOLECALCIFEROL
  10. NADOLOL. [Concomitant]
     Active Substance: NADOLOL

REACTIONS (6)
  - Pruritus [Recovered/Resolved]
  - Rash [Recovered/Resolved]
  - Dyspnoea [Recovered/Resolved]
  - Hypotension [Recovered/Resolved]
  - Chest discomfort [Recovered/Resolved]
  - Erythema [Recovered/Resolved]
